FAERS Safety Report 4332499-3 (Version None)
Quarter: 2004Q2

REPORT INFORMATION
  Report Type: 
  Country: None (occurrence: None)
  Receive Date: 20040401
  Receipt Date: 20040322
  Transmission Date: 20050107
  Serious: Yes (Hospitalization)
  Sender: FDA-Public Use
  Company Number: 2004CG00578

PATIENT
  Age: 69 Year
  Sex: Male
  Weight: 80 kg

DRUGS (7)
  1. OMEPRAZOLE [Suspect]
     Indication: ABDOMINAL PAIN
     Dates: start: 20010615, end: 20040114
  2. APROVEL [Suspect]
     Indication: ESSENTIAL HYPERTENSION
     Dosage: 1 DF DAILY PO
     Route: 048
     Dates: start: 19990615
  3. TAHOR [Suspect]
     Indication: LIPID METABOLISM DISORDER
     Dosage: 1 DF DAILY PO
     Route: 048
     Dates: start: 19950615, end: 20040114
  4. TRANDATE [Suspect]
     Indication: ESSENTIAL HYPERTENSION
     Dosage: 200 MG DAILY PO
     Route: 048
     Dates: start: 19990615
  5. PLAVIX [Suspect]
     Indication: ARTERITIS
     Dosage: 1 DF DAILY PO
     Route: 048
     Dates: start: 19940615, end: 20031201
  6. PLAVIX [Suspect]
     Indication: ARTERITIS
     Dosage: 2 DF DAILY PO
     Route: 048
     Dates: start: 20031201, end: 20031222
  7. BUFLOMEDIL RATIOPHARM [Suspect]
     Indication: ARTERITIS
     Dosage: 1 DF BID PO
     Route: 048

REACTIONS (3)
  - ECCHYMOSIS [None]
  - PETECHIAE [None]
  - THROMBOCYTOPENIA [None]
